FAERS Safety Report 15269366 (Version 5)
Quarter: 2019Q3

REPORT INFORMATION
  Report Type: Spontaneous
  Country: US (occurrence: US)
  Receive Date: 20180813
  Receipt Date: 20190730
  Transmission Date: 20191004
  Serious: Yes (Other)
  Sender: FDA-Public Use
  Company Number: US-HORIZON-VIM-0748-2018

PATIENT
  Age: 60 Year
  Sex: Male
  Weight: 78.5 kg

DRUGS (54)
  1. NEXIUM [Suspect]
     Active Substance: ESOMEPRAZOLE MAGNESIUM
     Indication: GASTROOESOPHAGEAL REFLUX DISEASE
     Route: 048
     Dates: start: 2006, end: 2015
  2. INDOCID [Concomitant]
     Active Substance: INDOMETHACIN
  3. HYDROCHLOROTHIAZIDE. [Concomitant]
     Active Substance: HYDROCHLOROTHIAZIDE
  4. LOTENSIN [Concomitant]
     Active Substance: BENAZEPRIL HYDROCHLORIDE
  5. PRINIVIL [Concomitant]
     Active Substance: LISINOPRIL
  6. ASPIRIN. [Concomitant]
     Active Substance: ASPIRIN
  7. ROLAIDS [Concomitant]
     Active Substance: CALCIUM CARBONATE\MAGNESIUM HYDROXIDE
  8. PLAVIX [Concomitant]
     Active Substance: CLOPIDOGREL BISULFATE
  9. LORAZEPAM. [Concomitant]
     Active Substance: LORAZEPAM
  10. MOBIC [Concomitant]
     Active Substance: MELOXICAM
  11. DORYX [Concomitant]
     Active Substance: DOXYCYCLINE HYCLATE
  12. LIPITOR [Concomitant]
     Active Substance: ATORVASTATIN CALCIUM
  13. ACETAMINOPHEN. [Concomitant]
     Active Substance: ACETAMINOPHEN
  14. NEXIUM [Suspect]
     Active Substance: ESOMEPRAZOLE MAGNESIUM
     Indication: GASTROOESOPHAGEAL REFLUX DISEASE
     Route: 048
     Dates: start: 2007
  15. QUININE [Concomitant]
     Active Substance: QUININE
  16. CEFTIN [Concomitant]
     Active Substance: CEFUROXIME AXETIL
  17. VANCOCIN [Concomitant]
     Active Substance: VANCOMYCIN HYDROCHLORIDE
  18. IBUPROFEN. [Concomitant]
     Active Substance: IBUPROFEN
  19. NEXIUM 24HR [Suspect]
     Active Substance: ESOMEPRAZOLE MAGNESIUM
     Route: 048
     Dates: start: 2006, end: 2015
  20. VIMOVO [Suspect]
     Active Substance: ESOMEPRAZOLE MAGNESIUM\NAPROXEN
     Indication: PRODUCT USED FOR UNKNOWN INDICATION
     Route: 048
     Dates: start: 2006, end: 2015
  21. PRILOSEC [Suspect]
     Active Substance: OMEPRAZOLE MAGNESIUM
     Indication: GASTROOESOPHAGEAL REFLUX DISEASE
     Route: 048
     Dates: start: 2006, end: 2015
  22. DEXILANT [Suspect]
     Active Substance: DEXLANSOPRAZOLE
     Route: 065
     Dates: start: 2006, end: 2015
  23. ACIPHEX [Suspect]
     Active Substance: RABEPRAZOLE SODIUM
     Indication: GASTROOESOPHAGEAL REFLUX DISEASE
     Route: 065
     Dates: start: 2006, end: 2015
  24. AVELOX [Concomitant]
     Active Substance: MOXIFLOXACIN HYDROCHLORIDE
  25. KEFLEX [Concomitant]
     Active Substance: CEPHALEXIN
  26. ERYC [Concomitant]
     Active Substance: ERYTHROMYCIN
  27. LASIX [Concomitant]
     Active Substance: FUROSEMIDE
  28. VITAMIN D [Concomitant]
     Active Substance: VITAMIN D NOS
  29. RANITIDINE. [Concomitant]
     Active Substance: RANITIDINE
     Dosage: GENERIC
     Dates: start: 2015
  30. PREDNISONE. [Concomitant]
     Active Substance: PREDNISONE
  31. VIOXX [Concomitant]
     Active Substance: ROFECOXIB
  32. ZITHROMAX [Concomitant]
     Active Substance: AZITHROMYCIN DIHYDRATE
     Dates: start: 20070705
  33. CIPRO [Concomitant]
     Active Substance: CIPROFLOXACIN HYDROCHLORIDE
  34. STREPTOMYCIN [Concomitant]
     Active Substance: STREPTOMYCIN SULFATE
  35. COZAAR [Concomitant]
     Active Substance: LOSARTAN POTASSIUM
  36. PRILOSEC OTC [Suspect]
     Active Substance: OMEPRAZOLE MAGNESIUM
     Route: 048
     Dates: start: 2006, end: 2015
  37. FAMOTIDINE. [Concomitant]
     Active Substance: FAMOTIDINE
  38. TETRACYCLINE [Concomitant]
     Active Substance: TETRACYCLINE
  39. DIOVAN [Concomitant]
     Active Substance: VALSARTAN
  40. ZANTAC [Concomitant]
     Active Substance: RANITIDINE HYDROCHLORIDE
  41. PROTONIX [Suspect]
     Active Substance: PANTOPRAZOLE SODIUM
     Route: 065
     Dates: start: 2006, end: 2015
  42. ACIPHEX [Suspect]
     Active Substance: RABEPRAZOLE SODIUM
     Indication: GASTROOESOPHAGEAL REFLUX DISEASE
     Route: 048
     Dates: start: 20041002
  43. NUMORPHAN [Concomitant]
     Active Substance: OXYMORPHONE HYDROCHLORIDE
  44. TOBREX [Concomitant]
     Active Substance: TOBRAMYCIN
  45. BACTRIM [Concomitant]
     Active Substance: SULFAMETHOXAZOLE\TRIMETHOPRIM
  46. VASOTEC [Concomitant]
     Active Substance: ENALAPRIL MALEATE
  47. PREVACID [Suspect]
     Active Substance: LANSOPRAZOLE
     Indication: GASTROOESOPHAGEAL REFLUX DISEASE
     Route: 065
     Dates: start: 2006, end: 2015
  48. PRILOSEC [Suspect]
     Active Substance: OMEPRAZOLE MAGNESIUM
     Indication: GASTROOESOPHAGEAL REFLUX DISEASE
     Route: 048
     Dates: start: 2011
  49. CECLOR [Concomitant]
     Active Substance: CEFACLOR
  50. DURICEF [Concomitant]
     Active Substance: CEFADROXIL
  51. LEVAQUIN [Concomitant]
     Active Substance: LEVOFLOXACIN
     Dates: start: 20070824, end: 20150105
  52. ACCUPRIL [Concomitant]
     Active Substance: QUINAPRIL HYDROCHLORIDE
  53. PEPCID [Concomitant]
     Active Substance: FAMOTIDINE
     Dates: start: 2006
  54. TUMS [Concomitant]
     Active Substance: CALCIUM CARBONATE

REACTIONS (9)
  - End stage renal disease [Not Recovered/Not Resolved]
  - Acute kidney injury [Unknown]
  - Renal atrophy [Not Recovered/Not Resolved]
  - Chronic kidney disease [Not Recovered/Not Resolved]
  - Renal failure [Not Recovered/Not Resolved]
  - Dyspepsia [Unknown]
  - Proteinuria [Not Recovered/Not Resolved]
  - Fistula [Not Recovered/Not Resolved]
  - Tubulointerstitial nephritis [Not Recovered/Not Resolved]

NARRATIVE: CASE EVENT DATE: 2004
